FAERS Safety Report 11720921 (Version 1)
Quarter: 2015Q4

REPORT INFORMATION
  Report Type: Spontaneous
  Country: US (occurrence: US)
  Receive Date: 20151110
  Receipt Date: 20151110
  Transmission Date: 20160304
  Serious: No
  Sender: FDA-Public Use
  Company Number: US-SA-2015SA142079

PATIENT
  Age: 70 Year
  Sex: Male

DRUGS (4)
  1. PRALUENT [Suspect]
     Active Substance: ALIROCUMAB
     Indication: HYPERCHOLESTEROLAEMIA
     Dosage: IN ABDOMEN
     Route: 065
     Dates: start: 20150912, end: 20150912
  2. PRALUENT [Suspect]
     Active Substance: ALIROCUMAB
     Indication: HYPERCHOLESTEROLAEMIA
     Dosage: IN HIS THIGH
     Route: 065
     Dates: start: 20150914
  3. ALIROCUMAB PREFILLED PEN [Concomitant]
     Dates: start: 20150912, end: 20150912
  4. ALIROCUMAB PREFILLED PEN [Concomitant]
     Dates: start: 20150914

REACTIONS (1)
  - Inappropriate schedule of drug administration [Unknown]

NARRATIVE: CASE EVENT DATE: 20150914
